FAERS Safety Report 9160199 (Version 2)
Quarter: 2013Q1

REPORT INFORMATION
  Report Type: Spontaneous
  Country: JP (occurrence: JP)
  Receive Date: 20130313
  Receipt Date: 20130318
  Transmission Date: 20140127
  Serious: No
  Sender: FDA-Public Use
  Company Number: JP-PFIZER INC-2013083451

PATIENT
  Age: 41 Year
  Sex: Female

DRUGS (2)
  1. CELECOX [Suspect]
     Indication: RHEUMATOID ARTHRITIS
     Dosage: 200 MG, AS NEEDED
     Route: 048
  2. ACTEMRA [Concomitant]
     Dosage: UNK

REACTIONS (1)
  - Intentional drug misuse [Unknown]
